FAERS Safety Report 25306695 (Version 1)
Quarter: 2025Q2

REPORT INFORMATION
  Report Type: Spontaneous
  Country: KR (occurrence: KR)
  Receive Date: 20250513
  Receipt Date: 20250513
  Transmission Date: 20250716
  Serious: Yes (Other)
  Sender: BAUSCH AND LOMB
  Company Number: KR-BAUSCHBL-2025BNL008293

PATIENT
  Age: 64 Year
  Sex: Male

DRUGS (4)
  1. VISUDYNE [Suspect]
     Active Substance: VERTEPORFIN
     Indication: Choroidal neovascularisation
     Route: 042
  2. VISUDYNE [Suspect]
     Active Substance: VERTEPORFIN
     Indication: Off label use
  3. VISUDYNE [Suspect]
     Active Substance: VERTEPORFIN
     Indication: Subretinal fluid
  4. VISUDYNE [Suspect]
     Active Substance: VERTEPORFIN
     Indication: Retinal degeneration

REACTIONS (3)
  - Retinal degeneration [Recovering/Resolving]
  - Visual acuity reduced [Recovering/Resolving]
  - Off label use [Unknown]
